FAERS Safety Report 6368595-9 (Version None)
Quarter: 2009Q3

REPORT INFORMATION
  Report Type: 
  Country: None (occurrence: None)
  Receive Date: 20090917
  Receipt Date: 20090917
  Transmission Date: 20100115
  Serious: No
  Sender: FDA-Public Use
  Company Number: None

PATIENT
  Age: 36 Year
  Sex: Male

DRUGS (1)
  1. COMPAZINE [Suspect]
     Dosage: 2 MG IV BOLUS
     Route: 040

REACTIONS (4)
  - ANXIETY [None]
  - DOCUMENTED HYPERSENSITIVITY TO ADMINISTERED DRUG [None]
  - PRURITUS [None]
  - TREMOR [None]
